FAERS Safety Report 4521927-6 (Version None)
Quarter: 2004Q4

REPORT INFORMATION
  Report Type: 
  Country: None (occurrence: None)
  Receive Date: 20041209
  Receipt Date: 20041130
  Transmission Date: 20050328
  Serious: Yes (Other)
  Sender: FDA-Public Use
  Company Number: US-AMGEN-US101644

PATIENT
  Age: 26 Year
  Sex: Female

DRUGS (1)
  1. SENSIPAR [Suspect]
     Indication: HYPERPARATHYROIDISM SECONDARY

REACTIONS (7)
  - BLOOD ALBUMIN DECREASED [None]
  - BLOOD PARATHYROID HORMONE INCREASED [None]
  - HYPERCALCAEMIA [None]
  - HYPOCALCAEMIA [None]
  - ILEUS [None]
  - POST PROCEDURAL COMPLICATION [None]
  - RENAL AND PANCREAS TRANSPLANT [None]
